FAERS Safety Report 7086293-3 (Version None)
Quarter: 2010Q4

REPORT INFORMATION
  Report Type: 
  Country: None (occurrence: None)
  Receive Date: 20101105
  Receipt Date: 20101103
  Transmission Date: 20110411
  Serious: Yes (Other)
  Sender: FDA-Public Use
  Company Number: US-MERCK-0902USA01604

PATIENT
  Age: 56 Year
  Sex: Female

DRUGS (10)
  1. FOSAMAX [Suspect]
     Indication: OSTEOPENIA
     Route: 048
     Dates: start: 20000401
  2. FOSAMAX [Suspect]
     Route: 048
     Dates: start: 20010401, end: 20070301
  3. FOSAMAX [Suspect]
     Route: 048
     Dates: start: 19960901
  4. FOSAMAX [Suspect]
     Indication: OSTEOPOROSIS
     Route: 048
     Dates: start: 20000401
  5. FOSAMAX [Suspect]
     Route: 048
     Dates: start: 20010401, end: 20070301
  6. FOSAMAX [Suspect]
     Route: 048
     Dates: start: 19960901
  7. BONIVA [Suspect]
     Indication: OSTEOPENIA
     Route: 048
     Dates: start: 20070601, end: 20080601
  8. BONIVA [Suspect]
     Indication: OSTEOPOROSIS
     Route: 048
     Dates: start: 20070601, end: 20080601
  9. FOSAMAX PLUS D [Suspect]
     Indication: OSTEOPENIA
     Route: 048
     Dates: end: 20070501
  10. FOSAMAX PLUS D [Suspect]
     Indication: OSTEOPOROSIS
     Route: 048
     Dates: end: 20070501

REACTIONS (18)
  - ACUTE SINUSITIS [None]
  - BRONCHITIS [None]
  - BRUXISM [None]
  - DIVERTICULUM [None]
  - EXOSTOSIS [None]
  - GASTROINTESTINAL DISORDER [None]
  - GASTROOESOPHAGEAL REFLUX DISEASE [None]
  - GLOSSODYNIA [None]
  - HEADACHE [None]
  - HYPERTENSION [None]
  - HYPOTHYROIDISM [None]
  - LATEX ALLERGY [None]
  - MICTURITION URGENCY [None]
  - OSTEONECROSIS OF JAW [None]
  - SENSITIVITY OF TEETH [None]
  - TOOTH ABSCESS [None]
  - TOOTH DISORDER [None]
  - URINARY TRACT INFECTION [None]
